FAERS Safety Report 5088306-7 (Version None)
Quarter: 2006Q3

REPORT INFORMATION
  Report Type: 
  Country: None (occurrence: None)
  Receive Date: 20060821
  Receipt Date: 20060810
  Transmission Date: 20061208
  Serious: Yes (Death, Hospitalization)
  Sender: FDA-Public Use
  Company Number: 2006-04444

PATIENT
  Age: 36 Year
  Sex: Female

DRUGS (6)
  1. HYDRALAZINE [Suspect]
     Indication: HYPERTENSION
     Dosage: 100 MG, DAILY, ORAL
     Route: 048
     Dates: start: 20050101, end: 20060611
  2. ATENOLOL [Concomitant]
  3. CLONIDINE [Concomitant]
  4. NIFEDIPINE [Concomitant]
  5. FOSINOPRIL SODIUM [Concomitant]
  6. LEVOFLOXACIN [Concomitant]

REACTIONS (1)
  - LUPUS PNEUMONITIS [None]
